FAERS Safety Report 8287484-6 (Version None)
Quarter: 2012Q2

REPORT INFORMATION
  Report Type: 
  Country: None (occurrence: None)
  Receive Date: 20120416
  Receipt Date: 20120411
  Transmission Date: 20120825
  Serious: Yes (Hospitalization, Other)
  Sender: FDA-Public Use
  Company Number: US-BAYER-2012-014574

PATIENT
  Age: 72 Year
  Sex: Male

DRUGS (6)
  1. NEXAVAR [Suspect]
     Dosage: 200 MG, QD
     Dates: start: 20120201
  2. NEXAVAR [Suspect]
     Dosage: 200 MG, BID
     Route: 048
     Dates: start: 20120210
  3. OXYCODONE HCL [Concomitant]
     Indication: BONE PAIN
     Route: 048
  4. BLOOD TRANSFUSION, AUXILIARY PRODUCTS [Concomitant]
     Indication: PLATELET COUNT DECREASED
     Dosage: UNK UNK, TID
  5. NEXAVAR [Suspect]
     Indication: GASTROINTESTINAL STROMAL TUMOUR
     Dosage: 200 MG, BID
     Route: 048
     Dates: start: 20120209
  6. BLOOD TRANSFUSION, AUXILIARY PRODUCTS [Concomitant]
     Indication: HAEMOGLOBIN DECREASED

REACTIONS (7)
  - CONSTIPATION [None]
  - APATHY [None]
  - ABNORMAL LOSS OF WEIGHT [None]
  - ASTHENIA [None]
  - FATIGUE [None]
  - PYREXIA [None]
  - ARTHRALGIA [None]
